FAERS Safety Report 8240360-7 (Version None)
Quarter: 2012Q1

REPORT INFORMATION
  Report Type: 
  Country: None (occurrence: None)
  Receive Date: 20120309
  Receipt Date: 20110228
  Transmission Date: 20120608
  Serious: Yes (Hospitalization)
  Sender: FDA-Public Use
  Company Number: PHHY2010US84878

PATIENT
  Age: 36 Year
  Sex: Female

DRUGS (6)
  1. TYLENOL PM (DIPHENHYDRAMINE, PARACETAMOL) [Concomitant]
  2. BACLOFEN [Concomitant]
  3. EXTAVIA [Suspect]
     Indication: MULTIPLE SCLEROSIS
     Dosage: 0.125 MG, QOD, SUBCUTANEOUS : 0.25 MG, QOD, SUBCUTANEOUS
     Route: 058
     Dates: start: 20101010
  4. EXTAVIA [Suspect]
     Indication: MULTIPLE SCLEROSIS
     Dosage: 0.125 MG, QOD, SUBCUTANEOUS : 0.25 MG, QOD, SUBCUTANEOUS
     Route: 058
     Dates: start: 20101205
  5. TIZANIDINE HCL [Concomitant]
  6. TRAMADOL HCL [Concomitant]

REACTIONS (6)
  - FATIGUE [None]
  - WALKING AID USER [None]
  - MULTIPLE SCLEROSIS RELAPSE [None]
  - BACK PAIN [None]
  - SPEECH DISORDER [None]
  - PARAPLEGIA [None]
